FAERS Safety Report 6985249-6 (Version None)
Quarter: 2010Q3

REPORT INFORMATION
  Report Type: 
  Country: None (occurrence: None)
  Receive Date: 20100915
  Receipt Date: 20100903
  Transmission Date: 20110219
  Serious: Yes (Hospitalization)
  Sender: FDA-Public Use
  Company Number: US-JNJFOC-20100903447

PATIENT
  Sex: Female
  Weight: 50.2 kg

DRUGS (2)
  1. INFLIXIMAB [Suspect]
     Indication: CROHN'S DISEASE
     Route: 042
  2. BUDESONIDE [Concomitant]

REACTIONS (1)
  - ABDOMINAL PAIN [None]
